FAERS Safety Report 13896835 (Version 1)
Quarter: 2017Q3

REPORT INFORMATION
  Report Type: Spontaneous
  Country: US (occurrence: US)
  Receive Date: 20170821
  Receipt Date: 20170821
  Transmission Date: 20171127
  Serious: Yes (Life-Threatening, Other)
  Sender: FDA-Public Use
  Company Number: None

PATIENT
  Sex: Female
  Weight: 70.65 kg

DRUGS (9)
  1. TYLENOL EXTRA STRENGTH [Concomitant]
     Active Substance: ACETAMINOPHEN
  2. CALCIUM [Concomitant]
     Active Substance: CALCIUM
  3. BENADRYL [Concomitant]
     Active Substance: DIPHENHYDRAMINE HYDROCHLORIDE
  4. TIZANIDINE. [Concomitant]
     Active Substance: TIZANIDINE
  5. PROBIOTIC [Concomitant]
     Active Substance: PROBIOTICS NOS
  6. VITAMIN D [Concomitant]
     Active Substance: CHOLECALCIFEROL
  7. XANAX [Concomitant]
     Active Substance: ALPRAZOLAM
  8. BIOTIN [Concomitant]
     Active Substance: BIOTIN
  9. LEVOFLOXACIN. [Suspect]
     Active Substance: LEVOFLOXACIN
     Indication: UPPER RESPIRATORY TRACT INFECTION
     Dosage: ?          QUANTITY:1 TABLET(S);?
     Route: 048
     Dates: start: 20170818, end: 20170820

REACTIONS (7)
  - Asthenia [None]
  - Tremor [None]
  - Refusal of treatment by patient [None]
  - Diarrhoea [None]
  - Presyncope [None]
  - Dyspnoea [None]
  - Chest discomfort [None]

NARRATIVE: CASE EVENT DATE: 20170820
